FAERS Safety Report 6614158-7 (Version None)
Quarter: 2010Q1

REPORT INFORMATION
  Report Type: 
  Country: None (occurrence: None)
  Receive Date: 20100303
  Receipt Date: 20100303
  Transmission Date: 20100710
  Serious: Yes (Hospitalization)
  Sender: FDA-Public Use
  Company Number: None

PATIENT
  Age: 89 Year
  Sex: Male

DRUGS (4)
  1. DECITABINE DAY 1-5 EVERY 28 DAYS [Suspect]
     Indication: ACUTE MYELOID LEUKAEMIA
     Dosage: 20MG/M2 DAYS 1-5 IV
     Route: 042
     Dates: start: 20100204, end: 20100208
  2. CYTARABINE (5MCG/KG SC) DAY 1-5 Q 26 DAYS [Suspect]
     Indication: ACUTE MYELOID LEUKAEMIA
     Dosage: 20MG/M2 DAYS 1-5 SQ
     Route: 058
     Dates: start: 20100204, end: 20100208
  3. G-CSF (5MCG/KG SC) DAY 1-5 Q 26 DAYS [Suspect]
     Dosage: 20 MG/M2 DAYS 1-5 SQ
     Route: 058
     Dates: start: 20100204, end: 20100208
  4. VANCOMYCIN [Concomitant]

REACTIONS (10)
  - ABDOMINAL DISTENSION [None]
  - CARDIAC FAILURE CONGESTIVE [None]
  - CONSTIPATION [None]
  - DRUG TOXICITY [None]
  - LUNG INFECTION [None]
  - PLEURAL EFFUSION [None]
  - REFUSAL OF TREATMENT BY PATIENT [None]
  - THROMBOCYTOPENIA [None]
  - URINARY BLADDER HAEMORRHAGE [None]
  - URINARY RETENTION [None]
